FAERS Safety Report 17446567 (Version 1)
Quarter: 2020Q1

REPORT INFORMATION
  Report Type: Spontaneous
  Country: US (occurrence: US)
  Receive Date: 20200221
  Receipt Date: 20200221
  Transmission Date: 20200409
  Serious: Yes (Other)
  Sender: FDA-Public Use
  Company Number: US-SHIRE-US202006417

PATIENT
  Sex: Female

DRUGS (1)
  1. VPRIV [Suspect]
     Active Substance: VELAGLUCERASE ALFA
     Indication: GAUCHER^S DISEASE
     Dosage: 6 DOSAGE FORM, 1X A MONTH
     Route: 042
     Dates: start: 20110310

REACTIONS (1)
  - Basal cell carcinoma [Not Recovered/Not Resolved]
